FAERS Safety Report 10084721 (Version 1)
Quarter: 2014Q2

REPORT INFORMATION
  Report Type: Report from Study
  Country: IT (occurrence: IT)
  Receive Date: 20140417
  Receipt Date: 20140417
  Transmission Date: 20141212
  Serious: Yes (Hospitalization)
  Sender: FDA-Public Use
  Company Number: IT-AMGEN INC.-ITACT2014026475

PATIENT
  Age: 59 Year
  Sex: Male

DRUGS (7)
  1. PEGFILGRASTIM [Suspect]
     Indication: NON-HODGKIN^S LYMPHOMA
     Dosage: 625 MG, UNK
     Route: 058
  2. CISPLATIN [Concomitant]
     Dosage: UNK
     Route: 042
     Dates: start: 20110106, end: 20110108
  3. METHYLPREDNISOLONE [Concomitant]
     Dosage: UNK
     Route: 042
     Dates: start: 20110106, end: 20110108
  4. ETOPOSIDE [Concomitant]
     Dosage: 185 MG, UNK
     Route: 042
     Dates: start: 20110106, end: 20110108
  5. CYTARABINE [Concomitant]
     Dosage: UNK
     Route: 042
     Dates: start: 20110106, end: 20110108
  6. CARBOPLATINO [Concomitant]
     Dosage: UNK
     Dates: start: 20110106, end: 20110108
  7. ARA-C [Concomitant]
     Dosage: 3.7 G, UNK
     Dates: start: 20110106, end: 20110108

REACTIONS (1)
  - Febrile neutropenia [Not Recovered/Not Resolved]
